FAERS Safety Report 14363269 (Version 1)
Quarter: 2018Q1

REPORT INFORMATION
  Report Type: Report from Study
  Country: US (occurrence: US)
  Receive Date: 20180108
  Receipt Date: 20180108
  Transmission Date: 20180509
  Serious: Yes (Hospitalization)
  Sender: FDA-Public Use
  Company Number: US-JNJFOC-20170718126

PATIENT
  Age: 60 Year
  Sex: Female

DRUGS (1)
  1. IMBRUVICA [Suspect]
     Active Substance: IBRUTINIB
     Indication: CHRONIC LYMPHOCYTIC LEUKAEMIA
     Dosage: 420 MG, QD
     Route: 048
     Dates: start: 20160318, end: 20170705

REACTIONS (3)
  - Intestinal obstruction [Recovering/Resolving]
  - Abdominal hernia [Recovering/Resolving]
  - Postoperative adhesion [Unknown]

NARRATIVE: CASE EVENT DATE: 20170705
